FAERS Safety Report 14330768 (Version 18)
Quarter: 2019Q3

REPORT INFORMATION
  Report Type: Report from Study
  Country: PL (occurrence: PL)
  Receive Date: 20171228
  Receipt Date: 20190822
  Transmission Date: 20191004
  Serious: Yes (Hospitalization)
  Sender: FDA-Public Use
  Company Number: PL-ROCHE-2046442

PATIENT
  Age: 45 Year
  Sex: Female
  Weight: 55.6 kg

DRUGS (27)
  1. BEVACIZUMAB. [Suspect]
     Active Substance: BEVACIZUMAB
     Indication: OVARIAN CANCER
     Dosage: LAST DOSE OD BEVACIZUMAB PRIOR TO SAE 28/DEC/2017 825MG
     Route: 042
     Dates: start: 20171228
  2. DEXAVEN [Concomitant]
     Active Substance: DEXAMETHASONE
     Indication: PROPHYLAXIS
     Route: 030
     Dates: start: 20171204, end: 20171205
  3. METOCLOPRAMIDUM [METOCLOPRAMIDE] [Concomitant]
     Indication: PROPHYLAXIS
     Route: 042
     Dates: start: 20171205, end: 20171205
  4. NOCTOFER [Concomitant]
     Route: 065
     Dates: start: 20180207, end: 20180208
  5. VITAMIN B6 [Concomitant]
     Active Substance: PYRIDOXINE HYDROCHLORIDE
     Indication: PROPHYLAXIS
     Route: 048
     Dates: start: 20171221, end: 20171226
  6. RED BLOOD CELLS, CONCENTRATED [Concomitant]
     Active Substance: HUMAN RED BLOOD CELL
     Route: 065
     Dates: start: 20180208, end: 20180208
  7. PANTOPRAZOL [PANTOPRAZOLE] [Concomitant]
     Active Substance: PANTOPRAZOLE
     Route: 065
     Dates: start: 20180118, end: 20180118
  8. SODIUM CHLORIDE. [Concomitant]
     Active Substance: SODIUM CHLORIDE
     Indication: PROPHYLAXIS
     Route: 042
     Dates: start: 20171205, end: 20171205
  9. CARBOPLATIN. [Suspect]
     Active Substance: CARBOPLATIN
     Indication: OVARIAN CANCER
     Dosage: DAY 1 OF EACH 21-DAY CYCLE FOR A TOTAL OF 6 CYCLES, DOSE: (AUC) OF 6 MG/ML/MIN?DOSE OF LAST CARBOPLA
     Route: 042
     Dates: start: 20171205
  10. CLEMASTIN [Concomitant]
     Active Substance: CLEMASTINE
     Route: 065
     Dates: start: 20170118, end: 20170118
  11. METOCLOPRAMIDUM [METOCLOPRAMIDE] [Concomitant]
     Route: 065
     Dates: start: 20171219, end: 20171226
  12. METOCLOPRAMIDUM [METOCLOPRAMIDE] [Concomitant]
     Route: 065
     Dates: start: 20180118, end: 20180118
  13. ONDASETRON [ONDANSETRON] [Concomitant]
     Indication: PROPHYLAXIS
     Route: 042
     Dates: start: 20171205, end: 20171205
  14. PANTOPRAZOLUM [Concomitant]
     Active Substance: PANTOPRAZOLE
     Route: 065
     Dates: start: 20180207, end: 20180207
  15. PACLITAXEL. [Suspect]
     Active Substance: PACLITAXEL
     Indication: OVARIAN CANCER
     Dosage: DAY 1 OF EACH 21-DAY CYCLE FOR A TOTAL OF 6 CYCLES (175 MG/M2)?DOSE OF LAST PACLITAXEL ADMINISTERED
     Route: 042
     Dates: start: 20171205
  16. ONDASETRON [ONDANSETRON] [Concomitant]
     Route: 065
     Dates: start: 20180118, end: 20180118
  17. LORMETAZEPAM [Concomitant]
     Active Substance: LORMETAZEPAM
     Indication: PROPHYLAXIS
     Route: 048
     Dates: start: 20171204, end: 20171205
  18. DEXAVEN [Concomitant]
     Active Substance: DEXAMETHASONE
     Route: 042
     Dates: start: 20180117, end: 20180118
  19. DEXAVEN [Concomitant]
     Active Substance: DEXAMETHASONE
     Route: 042
     Dates: start: 20180207, end: 20180209
  20. METYPRED [METHYLPREDNISOLONE] [Concomitant]
     Active Substance: METHYLPREDNISOLONE
     Indication: PROPHYLAXIS
     Route: 048
     Dates: start: 20171219, end: 20171225
  21. ATEZOLIZUMAB. [Suspect]
     Active Substance: ATEZOLIZUMAB
     Indication: OVARIAN CANCER
     Dosage: DAY 1 OF EACH 21-DAY CYCLE FOR A TOTAL OF 6 CYCLES?DATE OF MOST RECENT DOSE OF ATEZOLIZUMAB: 05/DEC/
     Route: 042
     Dates: start: 20171205
  22. CLEMASTIN [Concomitant]
     Active Substance: CLEMASTINE
     Indication: PREMEDICATION
     Dosage: 1 OTHER
     Route: 030
     Dates: start: 20171205, end: 20171205
  23. METYPRED [METHYLPREDNISOLONE] [Concomitant]
     Active Substance: METHYLPREDNISOLONE
     Route: 065
     Dates: start: 20180120, end: 20180130
  24. CLEXANE [Concomitant]
     Active Substance: ENOXAPARIN SODIUM
     Indication: PROPHYLAXIS
     Route: 065
     Dates: start: 201710
  25. PRESTARIUM [PERINDOPRIL] [Concomitant]
     Indication: PROPHYLAXIS
     Route: 065
     Dates: start: 201710
  26. PANTOPRAZOL [PANTOPRAZOLE] [Concomitant]
     Active Substance: PANTOPRAZOLE
     Indication: PREMEDICATION
     Dosage: 1 OTHER
     Route: 042
     Dates: start: 20171205, end: 20171205
  27. NEULASTA [Concomitant]
     Active Substance: PEGFILGRASTIM
     Indication: PROPHYLAXIS
     Route: 065
     Dates: start: 20180118, end: 20180118

REACTIONS (4)
  - Leukopenia [Recovered/Resolved]
  - Febrile neutropenia [Recovered/Resolved]
  - Thrombocytopenia [Recovered/Resolved]
  - Thrombocytopenia [Recovered/Resolved]

NARRATIVE: CASE EVENT DATE: 20171219
